FAERS Safety Report 6160769-5 (Version None)
Quarter: 2009Q2

REPORT INFORMATION
  Report Type: 
  Country: None (occurrence: None)
  Receive Date: 20090420
  Receipt Date: 20090408
  Transmission Date: 20091009
  Serious: Yes (Death, Other)
  Sender: FDA-Public Use
  Company Number: PHHY2009JP01136

PATIENT
  Sex: Female
  Weight: 50 kg

DRUGS (11)
  1. NEORAL [Suspect]
     Indication: MYASTHENIA GRAVIS
     Dosage: 250 MG, QD
     Route: 048
     Dates: start: 20080526, end: 20080828
  2. PREDNISOLONE [Concomitant]
     Indication: MYASTHENIA GRAVIS
     Dosage: 10 MG
     Route: 048
     Dates: start: 20030312, end: 20090105
  3. PREDNISOLONE [Concomitant]
     Dosage: 20 MG
     Route: 048
     Dates: start: 20030312, end: 20090105
  4. UBRETID [Concomitant]
     Indication: MYASTHENIA GRAVIS
     Dosage: 20 MG
     Route: 048
     Dates: start: 20030312, end: 20090105
  5. BASEN [Concomitant]
     Indication: DIABETES MELLITUS
     Dosage: 0.6 DF
     Route: 048
     Dates: start: 20030312, end: 20090105
  6. SCOPOLIA EXTRACT [Concomitant]
     Indication: DIARRHOEA
     Dosage: 60 MG
     Route: 048
     Dates: start: 20030312, end: 20090105
  7. ALFAROL [Concomitant]
     Indication: OSTEOPOROSIS
     Dosage: 1 UG
     Route: 048
     Dates: start: 20030312, end: 20090105
  8. GASTER D [Concomitant]
     Indication: GASTRIC ULCER
     Dosage: 40 MG
     Route: 048
     Dates: start: 20030312, end: 20090105
  9. LOPEMIN [Concomitant]
     Indication: DIARRHOEA
     Dosage: 2 MG
     Route: 048
     Dates: start: 20030312, end: 20090105
  10. FOSAMAX [Concomitant]
     Indication: OSTEOPOROSIS
     Dosage: 5 MG
     Route: 048
     Dates: start: 20030312, end: 20090105
  11. PROGRAF [Concomitant]

REACTIONS (2)
  - DRUG INEFFECTIVE [None]
  - PNEUMONIA [None]
